FAERS Safety Report 5844173-2 (Version None)
Quarter: 2008Q3

REPORT INFORMATION
  Report Type: 
  Country: None (occurrence: None)
  Receive Date: 20080813
  Receipt Date: 20080801
  Transmission Date: 20090109
  Serious: Yes (Other)
  Sender: FDA-Public Use
  Company Number: CO-PFIZER INC-2008044392

PATIENT
  Sex: Male

DRUGS (6)
  1. CHANTIX [Suspect]
     Indication: SMOKING CESSATION THERAPY
     Route: 048
     Dates: start: 20080403, end: 20080101
  2. CARDIOASPIRINA [Concomitant]
  3. NORVASC [Concomitant]
  4. LIPITOR [Concomitant]
  5. XENICAL [Concomitant]
  6. ALL OTHER THERAPEUTIC PRODUCTS [Concomitant]

REACTIONS (6)
  - GLOSSODYNIA [None]
  - INFARCTION [None]
  - ORAL PAIN [None]
  - OROPHARYNGEAL PAIN [None]
  - PAIN [None]
  - WEIGHT INCREASED [None]
